FAERS Safety Report 21399841 (Version 1)
Quarter: 2022Q4

REPORT INFORMATION
  Report Type: Report from Study
  Country: MY (occurrence: MY)
  Receive Date: 20221002
  Receipt Date: 20221002
  Transmission Date: 20230112
  Serious: Yes (Other)
  Sender: FDA-Public Use
  Company Number: MY-NOVARTISPH-NVSC2022MY219739

PATIENT

DRUGS (2)
  1. TRAMETINIB [Suspect]
     Active Substance: TRAMETINIB
     Indication: Metastatic malignant melanoma
     Dosage: UNK
     Route: 065
  2. DABRAFENIB [Suspect]
     Active Substance: DABRAFENIB
     Indication: Metastatic malignant melanoma
     Dosage: UNK
     Route: 065

REACTIONS (1)
  - Thrombosis [Unknown]
